FAERS Safety Report 6071806-0 (Version None)
Quarter: 2009Q1

REPORT INFORMATION
  Report Type: 
  Country: None (occurrence: None)
  Receive Date: 20090210
  Receipt Date: 20090127
  Transmission Date: 20090719
  Serious: Yes (Hospitalization, Other)
  Sender: FDA-Public Use
  Company Number: PHHY2009FR03402

PATIENT
  Sex: Female

DRUGS (4)
  1. LESCOL [Suspect]
     Indication: HYPERCHOLESTEROLAEMIA
     Dosage: UNK
     Route: 048
     Dates: start: 20031201, end: 20041101
  2. FRACTAL [Suspect]
     Indication: HYPERCHOLESTEROLAEMIA
     Dosage: UNK
     Route: 048
     Dates: start: 20020101, end: 20030101
  3. ZOCOR [Suspect]
     Indication: HYPERCHOLESTEROLAEMIA
     Dosage: 1 DF, QD
     Route: 048
     Dates: start: 20041201, end: 20051001
  4. BONIVA [Concomitant]
     Indication: OSTEOPOROSIS
     Dosage: UNK

REACTIONS (15)
  - APHONIA [None]
  - BRONCHOALVEOLAR LAVAGE [None]
  - C-REACTIVE PROTEIN INCREASED [None]
  - CHEST PAIN [None]
  - CHEST X-RAY ABNORMAL [None]
  - COUGH [None]
  - DYSPNOEA [None]
  - DYSPNOEA EXERTIONAL [None]
  - ENDOSCOPY [None]
  - INTERSTITIAL LUNG DISEASE [None]
  - ORGANISING PNEUMONIA [None]
  - PRODUCTIVE COUGH [None]
  - PYREXIA [None]
  - RESPIRATORY DISORDER [None]
  - WHITE BLOOD CELL COUNT INCREASED [None]
